FAERS Safety Report 8847214 (Version 1)
Quarter: 2012Q4

REPORT INFORMATION
  Report Type: 
  Country: US (occurrence: US)
  Receive Date: 20121018
  Receipt Date: 20121018
  Transmission Date: 20130627
  Serious: No
  Sender: FDA-Public Use
  Company Number: US-MYLANLABS-2012S1003469

PATIENT
  Sex: Male

DRUGS (3)
  1. CARBIDOPA AND LEVODOPA EXTENDED RELEASE [Suspect]
     Indication: PARKINSON^S DISEASE
     Route: 048
     Dates: start: 1999
  2. PLAVIX [Concomitant]
     Route: 048
  3. PREVACID [Concomitant]
     Route: 048

REACTIONS (2)
  - Dyskinesia [Not Recovered/Not Resolved]
  - Food interaction [Not Recovered/Not Resolved]
